FAERS Safety Report 9594870 (Version 1)
Quarter: 2013Q4

REPORT INFORMATION
  Report Type: Spontaneous
  Country: US (occurrence: US)
  Receive Date: 20131004
  Receipt Date: 20131004
  Transmission Date: 20140711
  Serious: No
  Sender: FDA-Public Use
  Company Number: US-009507513-1310USA002122

PATIENT
  Sex: Male

DRUGS (1)
  1. SINEMET [Suspect]
     Indication: PARKINSON^S DISEASE
     Dosage: UNK, 6 PILLS EVERY 4 HOURS, STRENGTH 50/200 MG ,SUSTAINED ACTION
     Route: 048

REACTIONS (3)
  - Head discomfort [Unknown]
  - Dizziness [Unknown]
  - Headache [Unknown]
